FAERS Safety Report 25540056 (Version 1)
Quarter: 2025Q3

REPORT INFORMATION
  Report Type: Spontaneous
  Country: EU (occurrence: EU)
  Receive Date: 20250710
  Receipt Date: 20250710
  Transmission Date: 20251020
  Serious: Yes (Other)
  Sender: MYLAN
  Company Number: None

PATIENT
  Age: 21 Year
  Sex: Female

DRUGS (32)
  1. MIRTAZAPINE [Suspect]
     Active Substance: MIRTAZAPINE
     Indication: Product used for unknown indication
  2. MIRTAZAPINE [Suspect]
     Active Substance: MIRTAZAPINE
     Route: 065
  3. MIRTAZAPINE [Suspect]
     Active Substance: MIRTAZAPINE
     Route: 065
  4. MIRTAZAPINE [Suspect]
     Active Substance: MIRTAZAPINE
  5. DULOXETINE [Suspect]
     Active Substance: DULOXETINE
     Indication: Product used for unknown indication
  6. DULOXETINE [Suspect]
     Active Substance: DULOXETINE
     Route: 065
  7. DULOXETINE [Suspect]
     Active Substance: DULOXETINE
     Route: 065
  8. DULOXETINE [Suspect]
     Active Substance: DULOXETINE
  9. QUETIAPINE [Suspect]
     Active Substance: QUETIAPINE
     Indication: Product used for unknown indication
  10. QUETIAPINE [Suspect]
     Active Substance: QUETIAPINE
     Route: 065
  11. QUETIAPINE [Suspect]
     Active Substance: QUETIAPINE
     Route: 065
  12. QUETIAPINE [Suspect]
     Active Substance: QUETIAPINE
  13. LOXAPINE SUCCINATE [Suspect]
     Active Substance: LOXAPINE SUCCINATE
     Indication: Product used for unknown indication
  14. LOXAPINE SUCCINATE [Suspect]
     Active Substance: LOXAPINE SUCCINATE
     Route: 065
  15. LOXAPINE SUCCINATE [Suspect]
     Active Substance: LOXAPINE SUCCINATE
     Route: 065
  16. LOXAPINE SUCCINATE [Suspect]
     Active Substance: LOXAPINE SUCCINATE
  17. OXAZEPAM [Suspect]
     Active Substance: OXAZEPAM
     Indication: Product used for unknown indication
  18. OXAZEPAM [Suspect]
     Active Substance: OXAZEPAM
     Route: 065
  19. OXAZEPAM [Suspect]
     Active Substance: OXAZEPAM
     Route: 065
  20. OXAZEPAM [Suspect]
     Active Substance: OXAZEPAM
  21. TROPATEPINE HYDROCHLORIDE [Suspect]
     Active Substance: TROPATEPINE HYDROCHLORIDE
     Indication: Product used for unknown indication
  22. TROPATEPINE HYDROCHLORIDE [Suspect]
     Active Substance: TROPATEPINE HYDROCHLORIDE
     Route: 065
  23. TROPATEPINE HYDROCHLORIDE [Suspect]
     Active Substance: TROPATEPINE HYDROCHLORIDE
     Route: 065
  24. TROPATEPINE HYDROCHLORIDE [Suspect]
     Active Substance: TROPATEPINE HYDROCHLORIDE
  25. CANNABIS SATIVA SUBSP. INDICA TOP [Suspect]
     Active Substance: CANNABIS SATIVA SUBSP. INDICA TOP
     Indication: Product used for unknown indication
  26. CANNABIS SATIVA SUBSP. INDICA TOP [Suspect]
     Active Substance: CANNABIS SATIVA SUBSP. INDICA TOP
     Route: 065
  27. CANNABIS SATIVA SUBSP. INDICA TOP [Suspect]
     Active Substance: CANNABIS SATIVA SUBSP. INDICA TOP
     Route: 065
  28. CANNABIS SATIVA SUBSP. INDICA TOP [Suspect]
     Active Substance: CANNABIS SATIVA SUBSP. INDICA TOP
  29. ALCOHOL [Suspect]
     Active Substance: ALCOHOL
     Indication: Product used for unknown indication
  30. ALCOHOL [Suspect]
     Active Substance: ALCOHOL
     Route: 065
  31. ALCOHOL [Suspect]
     Active Substance: ALCOHOL
     Route: 065
  32. ALCOHOL [Suspect]
     Active Substance: ALCOHOL

REACTIONS (1)
  - Chemical submission [Unknown]

NARRATIVE: CASE EVENT DATE: 20221001
